FAERS Safety Report 16469855 (Version 2)
Quarter: 2019Q3

REPORT INFORMATION
  Report Type: Spontaneous
  Country: US (occurrence: US)
  Receive Date: 20190624
  Receipt Date: 20190910
  Transmission Date: 20191004
  Serious: No
  Sender: FDA-Public Use
  Company Number: US-SA-2019SA168924

PATIENT
  Age: 72 Year
  Sex: Female

DRUGS (1)
  1. PRALUENT [Suspect]
     Active Substance: ALIROCUMAB
     Indication: TYPE IIA HYPERLIPIDAEMIA
     Dosage: 150 MG, QOW
     Route: 058
     Dates: start: 20190525

REACTIONS (2)
  - Injection site pain [Unknown]
  - Cough [Recovering/Resolving]

NARRATIVE: CASE EVENT DATE: 2019
